FAERS Safety Report 5118895-5 (Version None)
Quarter: 2006Q4

REPORT INFORMATION
  Report Type: 
  Country: None (occurrence: None)
  Receive Date: 20061002
  Receipt Date: 20050725
  Transmission Date: 20070319
  Serious: Yes (Congenital Anomaly)
  Sender: FDA-Public Use
  Company Number: US-BOEHRINGER INGELHEIM PHARMACEUTICALS, INC.-2005-BP-12636BP

PATIENT
  Age: 0 Day
  Sex: Male
  Weight: 3.36 kg

DRUGS (2)
  1. VIRAMUNE [Suspect]
     Indication: HIV INFECTION
     Route: 015
     Dates: start: 20000403
  2. TRIZIVIR [Suspect]
     Indication: HIV INFECTION
     Dosage: 2 TABLETS DAILY
     Route: 048
     Dates: start: 20010920

REACTIONS (2)
  - HYDRONEPHROSIS [None]
  - PYELECTASIA [None]
